FAERS Safety Report 7837464-7 (Version None)
Quarter: 2011Q4

REPORT INFORMATION
  Report Type: 
  Country: None (occurrence: None)
  Receive Date: 20111024
  Receipt Date: 20110926
  Transmission Date: 20120403
  Serious: No
  Sender: FDA-Public Use
  Company Number: US-ABBOTT-11P-163-0858592-00

PATIENT
  Sex: Female
  Weight: 72.64 kg

DRUGS (3)
  1. IRON [Suspect]
     Indication: ANAEMIA
     Dosage: PILL
     Dates: start: 20110101
  2. LUPRON DEPOT [Suspect]
     Indication: MENORRHAGIA
     Dates: start: 20110719
  3. LUPRON DEPOT [Suspect]
     Indication: ANAEMIA

REACTIONS (2)
  - MUSCULOSKELETAL STIFFNESS [None]
  - NAUSEA [None]
